FAERS Safety Report 8259307-2 (Version None)
Quarter: 2012Q1

REPORT INFORMATION
  Report Type: 
  Country: None (occurrence: None)
  Receive Date: 20120327
  Receipt Date: 20081024
  Transmission Date: 20120608
  Serious: Yes (Other)
  Sender: FDA-Public Use
  Company Number: PHEH2008US07849

PATIENT
  Age: 81 Year
  Sex: Male
  Weight: 81.3 kg

DRUGS (4)
  1. GLEEVEC [Suspect]
     Indication: CHRONIC MYELOID LEUKAEMIA
     Dosage: 400 MG, QD, ORAL
     Route: 048
     Dates: start: 20080813, end: 20080902
  2. LIPITOR [Suspect]
     Dosage: 40 MG, QD, ORAL
     Route: 048
  3. ALLOPURINOL [Suspect]
     Indication: BLOOD URIC ACID INCREASED
     Dosage: 200 MG, QD, ORAL
     Route: 048
  4. ASPIRIN [Suspect]
     Dosage: 81 MG, QD, ORAL
     Route: 048

REACTIONS (10)
  - MELAENA [None]
  - WHITE BLOOD CELL COUNT ABNORMAL [None]
  - ABDOMINAL DISCOMFORT [None]
  - RASH PRURITIC [None]
  - NEUTROPHIL COUNT ABNORMAL [None]
  - HAEMATOCHEZIA [None]
  - NAUSEA [None]
  - HAEMOGLOBIN DECREASED [None]
  - HAEMATOCRIT DECREASED [None]
  - PLATELET COUNT INCREASED [None]
